FAERS Safety Report 7625968-1 (Version None)
Quarter: 2011Q3

REPORT INFORMATION
  Report Type: 
  Country: None (occurrence: None)
  Receive Date: 20110701
  Receipt Date: 20110701
  Transmission Date: 20111222
  Serious: Yes (Hospitalization)
  Sender: FDA-Public Use
  Company Number: 7005970

PATIENT
  Age: 45 Year
  Sex: Male

DRUGS (3)
  1. TIZANIDINE HCL [Concomitant]
  2. REBIF [Suspect]
     Indication: MULTIPLE SCLEROSIS
     Dosage: 44 MCG, 3 IN 1 WK, SUBCUTANEOUS
     Route: 058
     Dates: start: 20090326
  3. AMANTADINE HCL [Concomitant]

REACTIONS (5)
  - INJECTION SITE ERYTHEMA [None]
  - MULTIPLE SCLEROSIS RELAPSE [None]
  - INJECTION SITE NODULE [None]
  - SENSATION OF HEAVINESS [None]
  - INJECTION SITE PAIN [None]
